FAERS Safety Report 9818942 (Version 1)
Quarter: 2014Q1

REPORT INFORMATION
  Report Type: Spontaneous
  Country: TR (occurrence: TR)
  Receive Date: 20140115
  Receipt Date: 20140115
  Transmission Date: 20141002
  Serious: Yes (Other)
  Sender: FDA-Public Use
  Company Number: PHHY2014TR003243

PATIENT
  Age: 64 Year
  Sex: Female

DRUGS (4)
  1. ZOMETA [Suspect]
     Route: 042
  2. FASLODEX [Concomitant]
  3. AMOXICILLIN [Concomitant]
     Indication: INFECTION
     Dosage: 2 G, UNK
  4. AMOXICILLIN [Concomitant]
     Indication: PROPHYLAXIS
     Dosage: 1 G, TID, FOR 1 WEEK

REACTIONS (5)
  - Osteonecrosis of jaw [Unknown]
  - Dental caries [Unknown]
  - Pain [Recovered/Resolved]
  - Purulent discharge [Recovered/Resolved]
  - Infection [Recovered/Resolved]
